FAERS Safety Report 10490339 (Version 2)
Quarter: 2014Q4

REPORT INFORMATION
  Report Type: Spontaneous
  Country: US (occurrence: US)
  Receive Date: 20141002
  Receipt Date: 20141103
  Transmission Date: 20150528
  Serious: Yes (Other)
  Sender: FDA-Public Use
  Company Number: US-TEVA-513249USA

PATIENT
  Age: 34 Year
  Sex: Female

DRUGS (1)
  1. PARAGARD T380A [Suspect]
     Active Substance: COPPER
     Indication: CONTRACEPTION
     Route: 015
     Dates: start: 20131220

REACTIONS (2)
  - Device dislocation [Not Recovered/Not Resolved]
  - Pregnancy on contraceptive [Not Recovered/Not Resolved]

NARRATIVE: CASE EVENT DATE: 20140930
